FAERS Safety Report 16591524 (Version 2)
Quarter: 2019Q3

REPORT INFORMATION
  Report Type: Spontaneous
  Country: US (occurrence: US)
  Receive Date: 20190718
  Receipt Date: 20190724
  Transmission Date: 20191004
  Serious: Yes (Hospitalization, Other)
  Sender: FDA-Public Use
  Company Number: US-PFIZER INC-2019305099

PATIENT
  Age: 14 Month
  Sex: Male

DRUGS (1)
  1. BICILLIN L-A [Suspect]
     Active Substance: PENICILLIN G BENZATHINE
     Indication: THYROGLOSSAL CYST INFECTION
     Dosage: UNK (SUSPENSION, GLUTEUS R) (R BUTTOCK INJECTION SITE)
     Route: 030

REACTIONS (2)
  - Embolia cutis medicamentosa [Not Recovered/Not Resolved]
  - Myelitis transverse [Not Recovered/Not Resolved]
